FAERS Safety Report 6106053-7 (Version None)
Quarter: 2009Q1

REPORT INFORMATION
  Report Type: 
  Country: None (occurrence: None)
  Receive Date: 20090306
  Receipt Date: 20090227
  Transmission Date: 20090719
  Serious: Yes (Hospitalization)
  Sender: FDA-Public Use
  Company Number: AU-CELGENEUS-008-20785-09020608

PATIENT
  Sex: Male
  Weight: 82 kg

DRUGS (2)
  1. THALIDOMIDE [Suspect]
     Route: 048
     Dates: start: 20090206, end: 20090209
  2. AZACITIDINE [Suspect]
     Route: 065
     Dates: start: 20090206, end: 20090209

REACTIONS (2)
  - DIVERTICULAR PERFORATION [None]
  - ENTERITIS [None]
